FAERS Safety Report 19144859 (Version 12)
Quarter: 2025Q1

REPORT INFORMATION
  Report Type: Spontaneous
  Country: CA (occurrence: CA)
  Receive Date: 20210416
  Receipt Date: 20250303
  Transmission Date: 20250409
  Serious: Yes (Other)
  Sender: SANOFI AVENTIS
  Company Number: CA-SA-SAC20210414001464

PATIENT
  Age: 43 Year
  Sex: Female

DRUGS (383)
  1. ATOMOXETINE HYDROCHLORIDE [Suspect]
     Active Substance: ATOMOXETINE HYDROCHLORIDE
     Indication: Migraine
     Dosage: 1 DF, QD
     Route: 005
  2. ATOMOXETINE HYDROCHLORIDE [Suspect]
     Active Substance: ATOMOXETINE HYDROCHLORIDE
     Dosage: 1 DF, QD
     Route: 065
  3. ATOMOXETINE HYDROCHLORIDE [Suspect]
     Active Substance: ATOMOXETINE HYDROCHLORIDE
     Dosage: 1 DF, QD
     Route: 065
  4. ATOMOXETINE HYDROCHLORIDE [Suspect]
     Active Substance: ATOMOXETINE HYDROCHLORIDE
     Dosage: 1 DF, QD
     Route: 065
  5. ATOMOXETINE HYDROCHLORIDE [Suspect]
     Active Substance: ATOMOXETINE HYDROCHLORIDE
  6. ATOMOXETINE HYDROCHLORIDE [Suspect]
     Active Substance: ATOMOXETINE HYDROCHLORIDE
     Dosage: 1 DF, QOD
  7. TOPICORT [Suspect]
     Active Substance: DESOXIMETASONE
     Indication: Product used for unknown indication
     Dosage: 1 DF, Q12H
  8. TOPICORT [Suspect]
     Active Substance: DESOXIMETASONE
     Indication: Product used for unknown indication
     Dosage: 25 MG, QD
  9. TOPICORT [Suspect]
     Active Substance: DESOXIMETASONE
     Dosage: 1 DF, Q12H
  10. TOPICORT [Suspect]
     Active Substance: DESOXIMETASONE
     Dosage: 25 MG, Q12H
  11. TOPICORT [Suspect]
     Active Substance: DESOXIMETASONE
     Dosage: DOSE DESCRIPTION : 1 DF, Q12H
     Route: 065
  12. TOPICORT [Suspect]
     Active Substance: DESOXIMETASONE
     Dosage: DOSE DESCRIPTION : 25 MG, Q12H
     Route: 065
  13. TOPICORT [Suspect]
     Active Substance: DESOXIMETASONE
     Dosage: DOSE DESCRIPTION : 12 MG, Q12H
     Route: 065
  14. TOPICORT [Suspect]
     Active Substance: DESOXIMETASONE
     Route: 065
  15. TOPICORT [Suspect]
     Active Substance: DESOXIMETASONE
     Dosage: 2.000DF QD
     Route: 065
  16. TOPICORT [Suspect]
     Active Substance: DESOXIMETASONE
     Dosage: DOSE DESCRIPTION : 1 DF, Q12H
     Route: 065
  17. TOPICORT [Suspect]
     Active Substance: DESOXIMETASONE
     Route: 065
  18. TOPICORT [Suspect]
     Active Substance: DESOXIMETASONE
     Route: 065
  19. TRETINOIN [Suspect]
     Active Substance: TRETINOIN
     Indication: Product used for unknown indication
  20. BETAMETHASONE VALERATE [Suspect]
     Active Substance: BETAMETHASONE VALERATE
     Indication: Product used for unknown indication
     Dosage: 1 DF, QD
  21. BETAMETHASONE VALERATE [Suspect]
     Active Substance: BETAMETHASONE VALERATE
  22. BETAMETHASONE VALERATE [Suspect]
     Active Substance: BETAMETHASONE VALERATE
     Dosage: 1 DF, QD
  23. BETAMETHASONE VALERATE [Suspect]
     Active Substance: BETAMETHASONE VALERATE
     Dosage: 1 DF, QOD
  24. BETAMETHASONE VALERATE [Suspect]
     Active Substance: BETAMETHASONE VALERATE
  25. BETAMETHASONE VALERATE [Suspect]
     Active Substance: BETAMETHASONE VALERATE
  26. BETAMETHASONE VALERATE [Suspect]
     Active Substance: BETAMETHASONE VALERATE
     Dosage: 1 DF, QD
  27. BETAMETHASONE VALERATE [Suspect]
     Active Substance: BETAMETHASONE VALERATE
     Dosage: 1 DF, QOD
  28. NAPROXEN [Suspect]
     Active Substance: NAPROXEN
     Indication: Product used for unknown indication
     Dosage: 2 DF, BID
  29. NAPROXEN [Suspect]
     Active Substance: NAPROXEN
     Dosage: 1 DF, Q12H
     Route: 065
  30. NAPROXEN [Suspect]
     Active Substance: NAPROXEN
     Dosage: 1 DF, BID
     Route: 065
  31. NAPROXEN [Suspect]
     Active Substance: NAPROXEN
     Dosage: 2 DF, Q12H
     Route: 065
  32. NAPROXEN [Suspect]
     Active Substance: NAPROXEN
     Route: 065
  33. NAPROXEN [Suspect]
     Active Substance: NAPROXEN
     Dosage: 1 DF, BID
  34. NAPROXEN [Suspect]
     Active Substance: NAPROXEN
     Dosage: 1 DF, QOD
  35. NAPROXEN [Suspect]
     Active Substance: NAPROXEN
     Dosage: 2 DF, BID
  36. NAPROXEN [Suspect]
     Active Substance: NAPROXEN
     Dosage: 2 DF, BID
  37. NAPROXEN [Suspect]
     Active Substance: NAPROXEN
  38. NAPROXEN [Suspect]
     Active Substance: NAPROXEN
     Dosage: 1 DF, BID
  39. NAPROXEN [Suspect]
     Active Substance: NAPROXEN
  40. NAPROXEN [Suspect]
     Active Substance: NAPROXEN
  41. NAPROXEN [Suspect]
     Active Substance: NAPROXEN
  42. NAPROXEN [Suspect]
     Active Substance: NAPROXEN
  43. NAPROXEN [Suspect]
     Active Substance: NAPROXEN
     Dosage: 1 DF, BID
  44. NAPROXEN [Suspect]
     Active Substance: NAPROXEN
     Dosage: 1 DF, QOD
  45. NAPROXEN [Suspect]
     Active Substance: NAPROXEN
     Dosage: 2 DF, BID
  46. NAPROXEN [Suspect]
     Active Substance: NAPROXEN
     Dosage: 2 DF, BID
  47. NAPROXEN [Suspect]
     Active Substance: NAPROXEN
  48. NAPROXEN [Suspect]
     Active Substance: NAPROXEN
  49. PANTOPRAZOLE SODIUM [Suspect]
     Active Substance: PANTOPRAZOLE SODIUM
     Indication: Product used for unknown indication
     Dosage: 1 DF, BID
  50. PANTOPRAZOLE SODIUM [Suspect]
     Active Substance: PANTOPRAZOLE SODIUM
     Dosage: 2 DF, QD
     Route: 065
  51. PANTOPRAZOLE SODIUM [Suspect]
     Active Substance: PANTOPRAZOLE SODIUM
     Dosage: 1 DF, BID
  52. PANTOPRAZOLE SODIUM [Suspect]
     Active Substance: PANTOPRAZOLE SODIUM
     Dosage: 1 DF, QOD
  53. PANTOPRAZOLE SODIUM [Suspect]
     Active Substance: PANTOPRAZOLE SODIUM
     Dosage: 2 DF, QD
  54. PANTOPRAZOLE SODIUM [Suspect]
     Active Substance: PANTOPRAZOLE SODIUM
  55. PANTOPRAZOLE SODIUM [Suspect]
     Active Substance: PANTOPRAZOLE SODIUM
     Dosage: 1 DF, BID
  56. PANTOPRAZOLE SODIUM [Suspect]
     Active Substance: PANTOPRAZOLE SODIUM
  57. PANTOPRAZOLE SODIUM [Suspect]
     Active Substance: PANTOPRAZOLE SODIUM
  58. PANTOPRAZOLE SODIUM [Suspect]
     Active Substance: PANTOPRAZOLE SODIUM
  59. PANTOPRAZOLE SODIUM [Suspect]
     Active Substance: PANTOPRAZOLE SODIUM
     Dosage: 1 DF, BID
  60. PANTOPRAZOLE SODIUM [Suspect]
     Active Substance: PANTOPRAZOLE SODIUM
     Dosage: 1 DF, QOD
  61. PANTOPRAZOLE SODIUM [Suspect]
     Active Substance: PANTOPRAZOLE SODIUM
     Dosage: 2 DF, QD
  62. PANTOPRAZOLE SODIUM [Suspect]
     Active Substance: PANTOPRAZOLE SODIUM
     Dosage: PROLONGED-RELEASE TABLET
  63. PANTOPRAZOLE SODIUM [Suspect]
     Active Substance: PANTOPRAZOLE SODIUM
     Dosage: 1 DF, BID
  64. PANTOPRAZOLE SODIUM [Suspect]
     Active Substance: PANTOPRAZOLE SODIUM
     Dosage: 1 DF, BID
  65. PANTOPRAZOLE SODIUM [Suspect]
     Active Substance: PANTOPRAZOLE SODIUM
  66. PANTOPRAZOLE SODIUM [Suspect]
     Active Substance: PANTOPRAZOLE SODIUM
  67. PANTOPRAZOLE SODIUM [Suspect]
     Active Substance: PANTOPRAZOLE SODIUM
     Dosage: PROLONGED-RELEASE TABLET
  68. PANTOPRAZOLE SODIUM [Suspect]
     Active Substance: PANTOPRAZOLE SODIUM
  69. PANTOPRAZOLE SODIUM [Suspect]
     Active Substance: PANTOPRAZOLE SODIUM
  70. HYDROMORPHONE [Suspect]
     Active Substance: HYDROMORPHONE
     Indication: Product used for unknown indication
     Dosage: 1 DF, QOD
  71. HYDROMORPHONE [Suspect]
     Active Substance: HYDROMORPHONE
     Dosage: 1 DF, Q6H
     Route: 065
  72. HYDROMORPHONE [Suspect]
     Active Substance: HYDROMORPHONE
     Dosage: 2 DF, Q12H
     Route: 065
  73. HYDROMORPHONE [Suspect]
     Active Substance: HYDROMORPHONE
     Route: 065
  74. HYDROMORPHONE [Suspect]
     Active Substance: HYDROMORPHONE
     Route: 065
  75. HYDROMORPHONE [Suspect]
     Active Substance: HYDROMORPHONE
     Dosage: QOD
  76. HYDROMORPHONE [Suspect]
     Active Substance: HYDROMORPHONE
  77. HYDROMORPHONE [Suspect]
     Active Substance: HYDROMORPHONE
  78. HYDROMORPHONE [Suspect]
     Active Substance: HYDROMORPHONE
  79. HYDROMORPHONE [Suspect]
     Active Substance: HYDROMORPHONE
     Dosage: QOD
  80. HYDROMORPHONE [Suspect]
     Active Substance: HYDROMORPHONE
  81. HYDROMORPHONE [Suspect]
     Active Substance: HYDROMORPHONE
  82. HYDROMORPHONE [Suspect]
     Active Substance: HYDROMORPHONE
  83. HYDROMORPHONE [Suspect]
     Active Substance: HYDROMORPHONE
  84. HYDROMORPHONE [Suspect]
     Active Substance: HYDROMORPHONE
     Dosage: QOD
  85. HYDROMORPHONE [Suspect]
     Active Substance: HYDROMORPHONE
  86. HYDROMORPHONE [Suspect]
     Active Substance: HYDROMORPHONE
  87. HYDROMORPHONE [Suspect]
     Active Substance: HYDROMORPHONE
  88. HYDROMORPHONE [Suspect]
     Active Substance: HYDROMORPHONE
  89. CETIRIZINE HYDROCHLORIDE [Suspect]
     Active Substance: CETIRIZINE HYDROCHLORIDE
     Indication: Product used for unknown indication
  90. CETIRIZINE HYDROCHLORIDE [Suspect]
     Active Substance: CETIRIZINE HYDROCHLORIDE
     Indication: Product used for unknown indication
  91. CETIRIZINE HYDROCHLORIDE [Suspect]
     Active Substance: CETIRIZINE HYDROCHLORIDE
  92. CETIRIZINE HYDROCHLORIDE [Suspect]
     Active Substance: CETIRIZINE HYDROCHLORIDE
  93. CETIRIZINE HYDROCHLORIDE [Suspect]
     Active Substance: CETIRIZINE HYDROCHLORIDE
  94. CETIRIZINE HYDROCHLORIDE [Suspect]
     Active Substance: CETIRIZINE HYDROCHLORIDE
  95. CETIRIZINE HYDROCHLORIDE [Suspect]
     Active Substance: CETIRIZINE HYDROCHLORIDE
  96. CETIRIZINE HYDROCHLORIDE [Suspect]
     Active Substance: CETIRIZINE HYDROCHLORIDE
  97. CETIRIZINE HYDROCHLORIDE [Suspect]
     Active Substance: CETIRIZINE HYDROCHLORIDE
  98. CETIRIZINE HYDROCHLORIDE [Suspect]
     Active Substance: CETIRIZINE HYDROCHLORIDE
     Route: 065
  99. CETIRIZINE HYDROCHLORIDE [Suspect]
     Active Substance: CETIRIZINE HYDROCHLORIDE
     Dosage: 3 DF
     Route: 065
  100. CETIRIZINE HYDROCHLORIDE [Suspect]
     Active Substance: CETIRIZINE HYDROCHLORIDE
     Dosage: 1.000DF QD
     Route: 065
  101. CETIRIZINE HYDROCHLORIDE [Suspect]
     Active Substance: CETIRIZINE HYDROCHLORIDE
     Route: 048
  102. CETIRIZINE HYDROCHLORIDE [Suspect]
     Active Substance: CETIRIZINE HYDROCHLORIDE
     Dosage: DOSE DESCRIPTION : 3 DF, QD
     Route: 065
  103. CANDESARTAN CILEXETIL [Suspect]
     Active Substance: CANDESARTAN CILEXETIL
     Indication: Migraine
     Route: 048
  104. CANDESARTAN CILEXETIL [Suspect]
     Active Substance: CANDESARTAN CILEXETIL
     Route: 048
  105. CANDESARTAN CILEXETIL [Suspect]
     Active Substance: CANDESARTAN CILEXETIL
     Route: 048
  106. CANDESARTAN CILEXETIL [Suspect]
     Active Substance: CANDESARTAN CILEXETIL
     Route: 065
  107. CANDESARTAN CILEXETIL [Suspect]
     Active Substance: CANDESARTAN CILEXETIL
     Route: 048
  108. CANDESARTAN CILEXETIL [Suspect]
     Active Substance: CANDESARTAN CILEXETIL
     Route: 048
  109. CANDESARTAN CILEXETIL [Suspect]
     Active Substance: CANDESARTAN CILEXETIL
  110. CANDESARTAN CILEXETIL [Suspect]
     Active Substance: CANDESARTAN CILEXETIL
     Route: 048
  111. CANDESARTAN CILEXETIL [Suspect]
     Active Substance: CANDESARTAN CILEXETIL
     Route: 048
  112. CANDESARTAN CILEXETIL [Suspect]
     Active Substance: CANDESARTAN CILEXETIL
  113. CANDESARTAN CILEXETIL [Suspect]
     Active Substance: CANDESARTAN CILEXETIL
     Route: 048
  114. CANDESARTAN CILEXETIL [Suspect]
     Active Substance: CANDESARTAN CILEXETIL
     Route: 048
  115. CANDESARTAN CILEXETIL [Suspect]
     Active Substance: CANDESARTAN CILEXETIL
  116. DIETARY SUPPLEMENT [Suspect]
     Active Substance: DIETARY SUPPLEMENT
     Indication: Product used for unknown indication
  117. DOMPERIDONE MALEATE [Suspect]
     Active Substance: DOMPERIDONE MALEATE
     Indication: Product used for unknown indication
     Dosage: 1 DF, Q8H
     Route: 065
  118. DOMPERIDONE MALEATE [Suspect]
     Active Substance: DOMPERIDONE MALEATE
  119. DOMPERIDONE MALEATE [Suspect]
     Active Substance: DOMPERIDONE MALEATE
     Dosage: 3 DF, QD
  120. DOMPERIDONE MALEATE [Suspect]
     Active Substance: DOMPERIDONE MALEATE
     Dosage: 3 DF, Q3D
  121. DOMPERIDONE MALEATE [Suspect]
     Active Substance: DOMPERIDONE MALEATE
     Dosage: 3 DF, QD
  122. DESOXIMETASONE [Suspect]
     Active Substance: DESOXIMETASONE
     Indication: Product used for unknown indication
     Dosage: 1 DF, Q12H
     Route: 065
  123. DESOXIMETASONE [Suspect]
     Active Substance: DESOXIMETASONE
     Dosage: 3 MG, QD
  124. DESOXIMETASONE [Suspect]
     Active Substance: DESOXIMETASONE
     Dosage: 25 MG, Q12H
  125. DESOXIMETASONE [Suspect]
     Active Substance: DESOXIMETASONE
  126. DESOXIMETASONE [Suspect]
     Active Substance: DESOXIMETASONE
     Dosage: 12 MG, Q12H
  127. DIETARY SUPPLEMENT [Suspect]
     Active Substance: DIETARY SUPPLEMENT
  128. PAROXETINE [Suspect]
     Active Substance: PAROXETINE
  129. TOPIRAMATE [Suspect]
     Active Substance: TOPIRAMATE
     Indication: Migraine
  130. TOPIRAMATE [Suspect]
     Active Substance: TOPIRAMATE
     Dosage: 25 MG, QD
  131. TOPIRAMATE [Suspect]
     Active Substance: TOPIRAMATE
     Dosage: 25 MG, QD
  132. TOPIRAMATE [Suspect]
     Active Substance: TOPIRAMATE
     Dosage: 25 MG, QD
  133. TOPIRAMATE [Suspect]
     Active Substance: TOPIRAMATE
  134. TOPIRAMATE [Suspect]
     Active Substance: TOPIRAMATE
     Dosage: 25 MG, QD
  135. CAFFEINE\VITAMINS [Suspect]
     Active Substance: CAFFEINE\VITAMINS
  136. DOMPERIDONE MALEATE [Suspect]
     Active Substance: DOMPERIDONE MALEATE
     Indication: Product used for unknown indication
  137. DOMPERIDONE MALEATE [Suspect]
     Active Substance: DOMPERIDONE MALEATE
  138. DOMPERIDONE MALEATE [Suspect]
     Active Substance: DOMPERIDONE MALEATE
  139. DOMPERIDONE MALEATE [Suspect]
     Active Substance: DOMPERIDONE MALEATE
  140. DOMPERIDONE MALEATE [Suspect]
     Active Substance: DOMPERIDONE MALEATE
  141. ATOMOXETINE HYDROCHLORIDE [Suspect]
     Active Substance: ATOMOXETINE HYDROCHLORIDE
     Indication: Migraine
  142. ATOMOXETINE HYDROCHLORIDE [Suspect]
     Active Substance: ATOMOXETINE HYDROCHLORIDE
  143. CETIRIZINE HYDROCHLORIDE\PSEUDOEPHEDRINE HYDROCHLORIDE [Suspect]
     Active Substance: CETIRIZINE HYDROCHLORIDE\PSEUDOEPHEDRINE HYDROCHLORIDE
     Indication: Product used for unknown indication
  144. CETIRIZINE HYDROCHLORIDE\PSEUDOEPHEDRINE HYDROCHLORIDE [Suspect]
     Active Substance: CETIRIZINE HYDROCHLORIDE\PSEUDOEPHEDRINE HYDROCHLORIDE
  145. CETIRIZINE HYDROCHLORIDE\PSEUDOEPHEDRINE HYDROCHLORIDE [Suspect]
     Active Substance: CETIRIZINE HYDROCHLORIDE\PSEUDOEPHEDRINE HYDROCHLORIDE
     Dosage: 1 DF, QD
  146. MINERALS\VITAMINS [Suspect]
     Active Substance: MINERALS\VITAMINS
     Indication: Product used for unknown indication
     Dosage: 1 DF, QD
  147. MINERALS\VITAMINS [Suspect]
     Active Substance: MINERALS\VITAMINS
     Dosage: 1 DF, QD
  148. MINERALS\VITAMINS [Suspect]
     Active Substance: MINERALS\VITAMINS
     Dosage: 1 DF, QD
  149. DOMPERIDONE [Suspect]
     Active Substance: DOMPERIDONE
     Indication: Product used for unknown indication
  150. DOMPERIDONE [Suspect]
     Active Substance: DOMPERIDONE
  151. DOMPERIDONE [Suspect]
     Active Substance: DOMPERIDONE
     Dosage: 1 DF, TID
  152. DOMPERIDONE [Suspect]
     Active Substance: DOMPERIDONE
  153. DOMPERIDONE [Suspect]
     Active Substance: DOMPERIDONE
     Dosage: 3 DF, QD
  154. DOMPERIDONE [Suspect]
     Active Substance: DOMPERIDONE
  155. DOMPERIDONE [Suspect]
     Active Substance: DOMPERIDONE
  156. DOMPERIDONE [Suspect]
     Active Substance: DOMPERIDONE
  157. DOMPERIDONE [Suspect]
     Active Substance: DOMPERIDONE
  158. CETIRIZINE HYDROCHLORIDE\PSEUDOEPHEDRINE HYDROCHLORIDE [Suspect]
     Active Substance: CETIRIZINE HYDROCHLORIDE\PSEUDOEPHEDRINE HYDROCHLORIDE
  159. CETIRIZINE HYDROCHLORIDE\PSEUDOEPHEDRINE HYDROCHLORIDE [Suspect]
     Active Substance: CETIRIZINE HYDROCHLORIDE\PSEUDOEPHEDRINE HYDROCHLORIDE
  160. CETIRIZINE HYDROCHLORIDE [Suspect]
     Active Substance: CETIRIZINE HYDROCHLORIDE
     Indication: Product used for unknown indication
  161. CETIRIZINE HYDROCHLORIDE [Suspect]
     Active Substance: CETIRIZINE HYDROCHLORIDE
  162. CETIRIZINE HYDROCHLORIDE [Suspect]
     Active Substance: CETIRIZINE HYDROCHLORIDE
     Dosage: 3 DF, QD
  163. CETIRIZINE HYDROCHLORIDE [Suspect]
     Active Substance: CETIRIZINE HYDROCHLORIDE
     Dosage: 3 DF, QOD
  164. ACETAMINOPHEN [Suspect]
     Active Substance: ACETAMINOPHEN
     Indication: Product used for unknown indication
  165. ACETAMINOPHEN [Suspect]
     Active Substance: ACETAMINOPHEN
     Route: 065
  166. RANITIDINE [Suspect]
     Active Substance: RANITIDINE
     Indication: Product used for unknown indication
  167. HYDROMORPHONE HYDROCHLORIDE [Suspect]
     Active Substance: HYDROMORPHONE HYDROCHLORIDE
     Indication: Product used for unknown indication
     Dosage: 1 DF, BID
  168. HYDROMORPHONE HYDROCHLORIDE [Suspect]
     Active Substance: HYDROMORPHONE HYDROCHLORIDE
  169. HYDROMORPHONE HYDROCHLORIDE [Suspect]
     Active Substance: HYDROMORPHONE HYDROCHLORIDE
     Dosage: 2 DF, BID
  170. RANITIDINE HYDROCHLORIDE [Suspect]
     Active Substance: RANITIDINE HYDROCHLORIDE
     Indication: Product used for unknown indication
  171. RANITIDINE HYDROCHLORIDE [Suspect]
     Active Substance: RANITIDINE HYDROCHLORIDE
     Indication: Product used for unknown indication
  172. RANITIDINE HYDROCHLORIDE [Suspect]
     Active Substance: RANITIDINE HYDROCHLORIDE
     Route: 065
  173. RANITIDINE HYDROCHLORIDE [Suspect]
     Active Substance: RANITIDINE HYDROCHLORIDE
     Route: 065
  174. LAMOTRIGINE [Suspect]
     Active Substance: LAMOTRIGINE
     Indication: Product used for unknown indication
     Dosage: 50 MG, QID
     Route: 048
  175. LAMOTRIGINE [Suspect]
     Active Substance: LAMOTRIGINE
     Dosage: 25 MG, BID
     Route: 048
  176. LAMOTRIGINE [Suspect]
     Active Substance: LAMOTRIGINE
     Dosage: 50 MG, BID
     Route: 048
  177. LAMOTRIGINE [Suspect]
     Active Substance: LAMOTRIGINE
     Dosage: 50 MG, QOD
     Route: 048
  178. LAMOTRIGINE [Suspect]
     Active Substance: LAMOTRIGINE
     Dosage: 25 MG, QOD
     Route: 048
  179. LAMOTRIGINE [Suspect]
     Active Substance: LAMOTRIGINE
     Route: 048
  180. LAMOTRIGINE [Suspect]
     Active Substance: LAMOTRIGINE
     Route: 048
  181. LAMOTRIGINE [Suspect]
     Active Substance: LAMOTRIGINE
     Route: 048
  182. LAMOTRIGINE [Suspect]
     Active Substance: LAMOTRIGINE
     Route: 048
  183. LAMOTRIGINE [Suspect]
     Active Substance: LAMOTRIGINE
     Dosage: QOD
     Route: 048
  184. LAMOTRIGINE [Suspect]
     Active Substance: LAMOTRIGINE
     Route: 048
  185. LAMOTRIGINE [Suspect]
     Active Substance: LAMOTRIGINE
     Route: 048
  186. LAMOTRIGINE [Suspect]
     Active Substance: LAMOTRIGINE
     Route: 048
  187. LAMOTRIGINE [Suspect]
     Active Substance: LAMOTRIGINE
     Route: 048
  188. LAMOTRIGINE [Suspect]
     Active Substance: LAMOTRIGINE
     Route: 048
  189. LAMOTRIGINE [Suspect]
     Active Substance: LAMOTRIGINE
     Dosage: 25 MG, BID
     Route: 048
  190. LAMOTRIGINE [Suspect]
     Active Substance: LAMOTRIGINE
     Route: 048
  191. LAMOTRIGINE [Suspect]
     Active Substance: LAMOTRIGINE
     Route: 048
  192. HYDROCORTISONE ACETATE [Suspect]
     Active Substance: HYDROCORTISONE ACETATE
  193. HYDROCORTISONE ACETATE [Suspect]
     Active Substance: HYDROCORTISONE ACETATE
     Dosage: 25.000MG QD
     Route: 065
  194. HYDROCORTISONE ACETATE [Suspect]
     Active Substance: HYDROCORTISONE ACETATE
     Route: 065
  195. ERGOCALCIFEROL [Suspect]
     Active Substance: ERGOCALCIFEROL
  196. ERGOCALCIFEROL [Suspect]
     Active Substance: ERGOCALCIFEROL
  197. TRIAMCINOLONE ACETONIDE [Suspect]
     Active Substance: TRIAMCINOLONE ACETONIDE
     Indication: Product used for unknown indication
     Route: 014
  198. MINERALS\VITAMINS [Suspect]
     Active Substance: MINERALS\VITAMINS
     Dosage: 1 DF, QD
  199. FLUTICASONE FUROATE [Suspect]
     Active Substance: FLUTICASONE FUROATE
     Indication: Product used for unknown indication
  200. FLUTICASONE FUROATE [Suspect]
     Active Substance: FLUTICASONE FUROATE
     Indication: Product used for unknown indication
     Dosage: 1 DF, QD, SPRAY, METERED DOSE
  201. FLUTICASONE FUROATE [Suspect]
     Active Substance: FLUTICASONE FUROATE
  202. FLUTICASONE FUROATE [Suspect]
     Active Substance: FLUTICASONE FUROATE
     Route: 065
  203. FLUTICASONE FUROATE [Suspect]
     Active Substance: FLUTICASONE FUROATE
     Dosage: DOSE DESCRIPTION : 1 DF, QD, SPRAY, METERED DOSE
     Route: 065
  204. FLUTICASONE FUROATE [Suspect]
     Active Substance: FLUTICASONE FUROATE
     Dosage: DOSE DESCRIPTION : SPRAY, METERED DOSE
     Route: 065
  205. CALCIUM [Suspect]
     Active Substance: CALCIUM
     Indication: Product used for unknown indication
  206. CALCIUM [Suspect]
     Active Substance: CALCIUM
  207. CALCIUM [Suspect]
     Active Substance: CALCIUM
  208. CALCIUM [Suspect]
     Active Substance: CALCIUM
  209. CALCIUM [Suspect]
     Active Substance: CALCIUM
  210. BOTULINUM TOXIN TYPE A [Suspect]
     Active Substance: BOTULINUM TOXIN TYPE A
     Indication: Product used for unknown indication
  211. BOTULINUM TOXIN TYPE A [Suspect]
     Active Substance: BOTULINUM TOXIN TYPE A
  212. BUTRANS [Suspect]
     Active Substance: BUPRENORPHINE
     Indication: Product used for unknown indication
  213. BUTRANS [Suspect]
     Active Substance: BUPRENORPHINE
  214. BUTRANS [Suspect]
     Active Substance: BUPRENORPHINE
  215. BUTRANS [Suspect]
     Active Substance: BUPRENORPHINE
  216. CYCLOBENZAPRINE HYDROCHLORIDE [Suspect]
     Active Substance: CYCLOBENZAPRINE HYDROCHLORIDE
     Indication: Product used for unknown indication
     Dosage: 1 DF, QD
  217. CYCLOBENZAPRINE HYDROCHLORIDE [Suspect]
     Active Substance: CYCLOBENZAPRINE HYDROCHLORIDE
     Dosage: 1 DF, QD
  218. CYCLOBENZAPRINE HYDROCHLORIDE [Suspect]
     Active Substance: CYCLOBENZAPRINE HYDROCHLORIDE
     Dosage: 3 DF, QD
     Route: 065
  219. CYCLOBENZAPRINE HYDROCHLORIDE [Suspect]
     Active Substance: CYCLOBENZAPRINE HYDROCHLORIDE
     Dosage: 1 DF, QD
     Route: 065
  220. CYCLOBENZAPRINE HYDROCHLORIDE [Suspect]
     Active Substance: CYCLOBENZAPRINE HYDROCHLORIDE
     Dosage: 1 DF, QOD
  221. AIMOVIG [Suspect]
     Active Substance: ERENUMAB-AOOE
     Indication: Migraine
  222. AIMOVIG [Suspect]
     Active Substance: ERENUMAB-AOOE
     Route: 058
  223. AIMOVIG [Suspect]
     Active Substance: ERENUMAB-AOOE
  224. AIMOVIG [Suspect]
     Active Substance: ERENUMAB-AOOE
     Route: 058
  225. AIMOVIG [Suspect]
     Active Substance: ERENUMAB-AOOE
  226. AIMOVIG [Suspect]
     Active Substance: ERENUMAB-AOOE
     Route: 058
  227. AIMOVIG [Suspect]
     Active Substance: ERENUMAB-AOOE
  228. FLUTICASONE FUROATE [Suspect]
     Active Substance: FLUTICASONE FUROATE
     Indication: Product used for unknown indication
     Dosage: SPRAY, METERED DOSE (1 IN 1 D)
  229. FLUTICASONE FUROATE [Suspect]
     Active Substance: FLUTICASONE FUROATE
     Dosage: SPRAY, METERED DOSE
  230. FLUTICASONE FUROATE [Suspect]
     Active Substance: FLUTICASONE FUROATE
     Dosage: SPRAY, METERED DOSE
  231. FETZIMA [Suspect]
     Active Substance: LEVOMILNACIPRAN HYDROCHLORIDE
     Indication: Product used for unknown indication
     Dosage: 1 DF, QD
  232. FETZIMA [Suspect]
     Active Substance: LEVOMILNACIPRAN HYDROCHLORIDE
     Dosage: 1 DF, QD
     Route: 065
  233. FINACEA [Suspect]
     Active Substance: AZELAIC ACID
     Indication: Product used for unknown indication
     Dosage: 1 DF, QD
  234. FINACEA [Suspect]
     Active Substance: AZELAIC ACID
  235. FINACEA [Suspect]
     Active Substance: AZELAIC ACID
  236. FINACEA [Suspect]
     Active Substance: AZELAIC ACID
  237. FINACEA [Suspect]
     Active Substance: AZELAIC ACID
  238. FINACEA [Suspect]
     Active Substance: AZELAIC ACID
  239. FINACEA [Suspect]
     Active Substance: AZELAIC ACID
  240. FINACEA [Suspect]
     Active Substance: AZELAIC ACID
  241. FINACEA [Suspect]
     Active Substance: AZELAIC ACID
  242. FINACEA [Suspect]
     Active Substance: AZELAIC ACID
  243. FINACEA [Suspect]
     Active Substance: AZELAIC ACID
  244. LAMICTAL [Suspect]
     Active Substance: LAMOTRIGINE
     Indication: Product used for unknown indication
     Dosage: 50 MG, QOD
     Route: 048
  245. LAMICTAL [Suspect]
     Active Substance: LAMOTRIGINE
     Dosage: 25 MG, QOD
     Route: 048
  246. LAMICTAL [Suspect]
     Active Substance: LAMOTRIGINE
     Route: 048
  247. LAMICTAL [Suspect]
     Active Substance: LAMOTRIGINE
     Dosage: 25 MG, BID
     Route: 048
  248. LAMICTAL [Suspect]
     Active Substance: LAMOTRIGINE
     Route: 048
  249. LAMICTAL [Suspect]
     Active Substance: LAMOTRIGINE
     Dosage: QOD
     Route: 048
  250. LAMICTAL [Suspect]
     Active Substance: LAMOTRIGINE
     Route: 048
  251. LAMICTAL [Suspect]
     Active Substance: LAMOTRIGINE
     Route: 048
  252. LAMICTAL [Suspect]
     Active Substance: LAMOTRIGINE
     Route: 048
  253. LAMICTAL [Suspect]
     Active Substance: LAMOTRIGINE
     Route: 048
  254. LAMICTAL [Suspect]
     Active Substance: LAMOTRIGINE
     Route: 048
  255. LAMICTAL [Suspect]
     Active Substance: LAMOTRIGINE
     Route: 048
  256. LAMICTAL [Suspect]
     Active Substance: LAMOTRIGINE
     Route: 048
  257. LAMICTAL [Suspect]
     Active Substance: LAMOTRIGINE
     Route: 048
  258. LAMICTAL [Suspect]
     Active Substance: LAMOTRIGINE
     Route: 048
  259. MYRBETRIQ [Suspect]
     Active Substance: MIRABEGRON
     Indication: Product used for unknown indication
     Dosage: 1 DF, QD
  260. MYRBETRIQ [Suspect]
     Active Substance: MIRABEGRON
     Route: 065
  261. MYRBETRIQ [Suspect]
     Active Substance: MIRABEGRON
     Dosage: EXTENDED-RELEASE TABLET
  262. MYRBETRIQ [Suspect]
     Active Substance: MIRABEGRON
  263. MYRBETRIQ [Suspect]
     Active Substance: MIRABEGRON
     Dosage: EXTENDED-RELEASE TABLET
  264. MYRBETRIQ [Suspect]
     Active Substance: MIRABEGRON
     Dosage: EXTENDED-RELEASE TABLET
  265. TRAZODONE [Suspect]
     Active Substance: TRAZODONE HYDROCHLORIDE
     Indication: Product used for unknown indication
     Dosage: 1 DF, QD
  266. TRAZODONE [Suspect]
     Active Substance: TRAZODONE HYDROCHLORIDE
     Route: 065
  267. TRAZODONE [Suspect]
     Active Substance: TRAZODONE HYDROCHLORIDE
  268. TRAZODONE [Suspect]
     Active Substance: TRAZODONE HYDROCHLORIDE
  269. TRAZODONE [Suspect]
     Active Substance: TRAZODONE HYDROCHLORIDE
  270. TRAZODONE [Suspect]
     Active Substance: TRAZODONE HYDROCHLORIDE
  271. TRAZODONE [Suspect]
     Active Substance: TRAZODONE HYDROCHLORIDE
     Dosage: 1 DF
  272. TRAZODONE [Suspect]
     Active Substance: TRAZODONE HYDROCHLORIDE
     Dosage: 1 DF
  273. CETIRIZINE HYDROCHLORIDE\PSEUDOEPHEDRINE HYDROCHLORIDE [Suspect]
     Active Substance: CETIRIZINE HYDROCHLORIDE\PSEUDOEPHEDRINE HYDROCHLORIDE
     Indication: Product used for unknown indication
  274. VITAMINS NOS [Suspect]
     Active Substance: VITAMINS
     Indication: Product used for unknown indication
  275. VITAMINS NOS [Suspect]
     Active Substance: VITAMINS
  276. VITAMINS NOS [Suspect]
     Active Substance: VITAMINS
  277. CETIRIZINE HYDROCHLORIDE [Suspect]
     Active Substance: CETIRIZINE HYDROCHLORIDE
     Indication: Product used for unknown indication
  278. CETIRIZINE HYDROCHLORIDE [Suspect]
     Active Substance: CETIRIZINE HYDROCHLORIDE
  279. CETIRIZINE HYDROCHLORIDE [Suspect]
     Active Substance: CETIRIZINE HYDROCHLORIDE
  280. CETIRIZINE HYDROCHLORIDE [Suspect]
     Active Substance: CETIRIZINE HYDROCHLORIDE
     Route: 065
  281. CETIRIZINE HYDROCHLORIDE [Suspect]
     Active Substance: CETIRIZINE HYDROCHLORIDE
  282. ERENUMAB [Suspect]
     Active Substance: ERENUMAB
     Indication: Migraine
     Route: 058
  283. ERENUMAB [Suspect]
     Active Substance: ERENUMAB
  284. ERENUMAB [Suspect]
     Active Substance: ERENUMAB
  285. MILNACIPRAN HYDROCHLORIDE [Suspect]
     Active Substance: MILNACIPRAN HYDROCHLORIDE
     Indication: Product used for unknown indication
     Dosage: 1 DF, QD
     Route: 065
  286. MILNACIPRAN HYDROCHLORIDE [Suspect]
     Active Substance: MILNACIPRAN HYDROCHLORIDE
  287. MILNACIPRAN HYDROCHLORIDE [Suspect]
     Active Substance: MILNACIPRAN HYDROCHLORIDE
  288. MAGNESIUM [Suspect]
     Active Substance: MAGNESIUM
     Indication: Product used for unknown indication
  289. MAGNESIUM [Suspect]
     Active Substance: MAGNESIUM
  290. MAGNESIUM [Suspect]
     Active Substance: MAGNESIUM
  291. PAROXETINE HYDROCHLORIDE [Suspect]
     Active Substance: PAROXETINE HYDROCHLORIDE
     Indication: Product used for unknown indication
     Dosage: 1 DF, QD
  292. PAROXETINE HYDROCHLORIDE [Suspect]
     Active Substance: PAROXETINE HYDROCHLORIDE
     Dosage: 1 DF, QOD
  293. PHOSPHORUS [Suspect]
     Active Substance: PHOSPHORUS
     Indication: Product used for unknown indication
     Route: 065
  294. PHOSPHORUS [Suspect]
     Active Substance: PHOSPHORUS
  295. PHOSPHORUS [Suspect]
     Active Substance: PHOSPHORUS
  296. PHOSPHORUS [Suspect]
     Active Substance: PHOSPHORUS
  297. CORTISONE (HYDROCORTISONE) [Suspect]
     Active Substance: HYDROCORTISONE
     Indication: Product used for unknown indication
     Dosage: 25 MG, BID
  298. CALCIUM GLUCONATE [Suspect]
     Active Substance: CALCIUM GLUCONATE
     Indication: Product used for unknown indication
  299. CALCIUM GLUCONATE [Suspect]
     Active Substance: CALCIUM GLUCONATE
  300. CYCLOBENZAPRINE [Suspect]
     Active Substance: CYCLOBENZAPRINE
     Indication: Product used for unknown indication
  301. CYCLOBENZAPRINE [Suspect]
     Active Substance: CYCLOBENZAPRINE
  302. CYCLOBENZAPRINE [Suspect]
     Active Substance: CYCLOBENZAPRINE
  303. CYCLOBENZAPRINE [Suspect]
     Active Substance: CYCLOBENZAPRINE
  304. CYCLOBENZAPRINE [Suspect]
     Active Substance: CYCLOBENZAPRINE
  305. CYCLOBENZAPRINE [Suspect]
     Active Substance: CYCLOBENZAPRINE
  306. CYCLOBENZAPRINE [Suspect]
     Active Substance: CYCLOBENZAPRINE
  307. CYCLOBENZAPRINE [Suspect]
     Active Substance: CYCLOBENZAPRINE
  308. CYCLOBENZAPRINE [Suspect]
     Active Substance: CYCLOBENZAPRINE
  309. CYCLOBENZAPRINE [Suspect]
     Active Substance: CYCLOBENZAPRINE
  310. CYCLOBENZAPRINE [Suspect]
     Active Substance: CYCLOBENZAPRINE
  311. CANDESARTAN [Suspect]
     Active Substance: CANDESARTAN
     Indication: Migraine
  312. CANDESARTAN [Suspect]
     Active Substance: CANDESARTAN
     Route: 048
  313. ACETAMINOPHEN [Suspect]
     Active Substance: ACETAMINOPHEN
  314. AZELAIC ACID [Suspect]
     Active Substance: AZELAIC ACID
     Indication: Product used for unknown indication
  315. AZELAIC ACID [Suspect]
     Active Substance: AZELAIC ACID
     Route: 005
  316. AZELAIC ACID [Suspect]
     Active Substance: AZELAIC ACID
  317. AZELAIC ACID [Suspect]
     Active Substance: AZELAIC ACID
     Route: 005
  318. AZELAIC ACID [Suspect]
     Active Substance: AZELAIC ACID
  319. AZELAIC ACID [Suspect]
     Active Substance: AZELAIC ACID
     Route: 005
  320. AZELAIC ACID [Suspect]
     Active Substance: AZELAIC ACID
  321. AZELAIC ACID [Suspect]
     Active Substance: AZELAIC ACID
     Route: 005
  322. ASCORBIC ACID [Suspect]
     Active Substance: ASCORBIC ACID
     Indication: Product used for unknown indication
  323. ASCORBIC ACID [Suspect]
     Active Substance: ASCORBIC ACID
     Indication: Product used for unknown indication
     Route: 065
  324. PSEUDOEPHEDRINE HYDROCHLORIDE [Suspect]
     Active Substance: PSEUDOEPHEDRINE HYDROCHLORIDE
     Indication: Product used for unknown indication
     Route: 065
  325. PSEUDOEPHEDRINE HYDROCHLORIDE [Suspect]
     Active Substance: PSEUDOEPHEDRINE HYDROCHLORIDE
  326. PSEUDOEPHEDRINE HYDROCHLORIDE [Suspect]
     Active Substance: PSEUDOEPHEDRINE HYDROCHLORIDE
  327. PSEUDOEPHEDRINE HYDROCHLORIDE [Suspect]
     Active Substance: PSEUDOEPHEDRINE HYDROCHLORIDE
  328. PSEUDOEPHEDRINE HYDROCHLORIDE [Suspect]
     Active Substance: PSEUDOEPHEDRINE HYDROCHLORIDE
  329. PSEUDOEPHEDRINE HYDROCHLORIDE [Suspect]
     Active Substance: PSEUDOEPHEDRINE HYDROCHLORIDE
  330. TRAZODONE HYDROCHLORIDE [Suspect]
     Active Substance: TRAZODONE HYDROCHLORIDE
     Indication: Product used for unknown indication
     Route: 065
  331. TRAZODONE HYDROCHLORIDE [Suspect]
     Active Substance: TRAZODONE HYDROCHLORIDE
  332. TRAZODONE HYDROCHLORIDE [Suspect]
     Active Substance: TRAZODONE HYDROCHLORIDE
  333. TRAZODONE HYDROCHLORIDE [Suspect]
     Active Substance: TRAZODONE HYDROCHLORIDE
  334. TRAZODONE HYDROCHLORIDE [Suspect]
     Active Substance: TRAZODONE HYDROCHLORIDE
  335. PSEUDOEPHEDRINE [Suspect]
     Active Substance: PSEUDOEPHEDRINE
     Indication: Product used for unknown indication
  336. PSEUDOEPHEDRINE [Suspect]
     Active Substance: PSEUDOEPHEDRINE
  337. PSEUDOEPHEDRINE [Suspect]
     Active Substance: PSEUDOEPHEDRINE
  338. TOPAMAX [Suspect]
     Active Substance: TOPIRAMATE
     Indication: Product used for unknown indication
  339. TOPAMAX [Suspect]
     Active Substance: TOPIRAMATE
  340. TOPAMAX [Suspect]
     Active Substance: TOPIRAMATE
  341. TOPAMAX [Suspect]
     Active Substance: TOPIRAMATE
  342. TOPAMAX [Suspect]
     Active Substance: TOPIRAMATE
  343. TOPAMAX [Suspect]
     Active Substance: TOPIRAMATE
  344. TOPAMAX [Suspect]
     Active Substance: TOPIRAMATE
  345. TOPAMAX [Suspect]
     Active Substance: TOPIRAMATE
  346. TOPAMAX [Suspect]
     Active Substance: TOPIRAMATE
  347. TOPAMAX [Suspect]
     Active Substance: TOPIRAMATE
  348. TOPAMAX [Suspect]
     Active Substance: TOPIRAMATE
  349. TOPAMAX [Suspect]
     Active Substance: TOPIRAMATE
  350. CETIRIZINE HYDROCHLORIDE AND PSEUDOEPHEDRINE HYDROCHLORIDE [Suspect]
     Active Substance: CETIRIZINE HYDROCHLORIDE\PSEUDOEPHEDRINE HYDROCHLORIDE
  351. CETIRIZINE HYDROCHLORIDE AND PSEUDOEPHEDRINE HYDROCHLORIDE [Suspect]
     Active Substance: CETIRIZINE HYDROCHLORIDE\PSEUDOEPHEDRINE HYDROCHLORIDE
  352. CETIRIZINE [Suspect]
     Active Substance: CETIRIZINE HYDROCHLORIDE
     Indication: Product used for unknown indication
  353. CETIRIZINE [Suspect]
     Active Substance: CETIRIZINE HYDROCHLORIDE
  354. CETIRIZINE [Suspect]
     Active Substance: CETIRIZINE HYDROCHLORIDE
  355. CETIRIZINE [Suspect]
     Active Substance: CETIRIZINE HYDROCHLORIDE
  356. CETIRIZINE [Suspect]
     Active Substance: CETIRIZINE HYDROCHLORIDE
     Dosage: 3 DF
  357. CETIRIZINE [Suspect]
     Active Substance: CETIRIZINE HYDROCHLORIDE
  358. CHOLECALCIFEROL [Suspect]
     Active Substance: CHOLECALCIFEROL
  359. STRATTERA [Suspect]
     Active Substance: ATOMOXETINE HYDROCHLORIDE
     Indication: Product used for unknown indication
  360. PAROXETINE [Suspect]
     Active Substance: PAROXETINE
     Indication: Product used for unknown indication
  361. VITAMIN D3 [Suspect]
     Active Substance: CHOLECALCIFEROL
     Indication: Product used for unknown indication
  362. VITAMIN D3 [Suspect]
     Active Substance: CHOLECALCIFEROL
  363. VITAMIN D3 [Suspect]
     Active Substance: CHOLECALCIFEROL
  364. VITAMIN D3 [Suspect]
     Active Substance: CHOLECALCIFEROL
  365. VITAMIN D3 [Suspect]
     Active Substance: CHOLECALCIFEROL
  366. VITAMIN D3 [Suspect]
     Active Substance: CHOLECALCIFEROL
  367. VITAMIN D3 [Suspect]
     Active Substance: CHOLECALCIFEROL
  368. VITAMIN D3 [Suspect]
     Active Substance: CHOLECALCIFEROL
  369. CETIRIZINE HYDROCHLORIDE\PSEUDOEPHEDRINE HYDROCHLORIDE [Suspect]
     Active Substance: CETIRIZINE HYDROCHLORIDE\PSEUDOEPHEDRINE HYDROCHLORIDE
     Indication: Product used for unknown indication
  370. CETIRIZINE HYDROCHLORIDE\PSEUDOEPHEDRINE HYDROCHLORIDE [Suspect]
     Active Substance: CETIRIZINE HYDROCHLORIDE\PSEUDOEPHEDRINE HYDROCHLORIDE
  371. DOMPERIDONE\PANTOPRAZOLE SODIUM [Suspect]
     Active Substance: DOMPERIDONE\PANTOPRAZOLE SODIUM
  372. DOMPERIDONE\PANTOPRAZOLE SODIUM [Suspect]
     Active Substance: DOMPERIDONE\PANTOPRAZOLE SODIUM
  373. DOMPERIDONE\PANTOPRAZOLE SODIUM [Suspect]
     Active Substance: DOMPERIDONE\PANTOPRAZOLE SODIUM
  374. DOMPERIDONE\PANTOPRAZOLE SODIUM [Suspect]
     Active Substance: DOMPERIDONE\PANTOPRAZOLE SODIUM
  375. VITAMINS [Suspect]
     Active Substance: VITAMINS
     Indication: Product used for unknown indication
  376. MIRABEGRON [Suspect]
     Active Substance: MIRABEGRON
     Dosage: EXTENDED-RELEASE TABLET
  377. MIRABEGRON [Suspect]
     Active Substance: MIRABEGRON
     Dosage: EXTENDED-RELEASE TABLET
  378. MINERALS\VITAMINS [Suspect]
     Active Substance: MINERALS\VITAMINS
     Indication: Product used for unknown indication
  379. CALCIUM PANTOTHENATE [Suspect]
     Active Substance: CALCIUM PANTOTHENATE
     Indication: Product used for unknown indication
  380. CALCIUM PANTOTHENATE [Suspect]
     Active Substance: CALCIUM PANTOTHENATE
  381. TRICHOLINE CITRATE [Suspect]
     Active Substance: TRICHOLINE CITRATE
  382. DOMPERIDONE\PANTOPRAZOLE SODIUM [Concomitant]
     Active Substance: DOMPERIDONE\PANTOPRAZOLE SODIUM
     Indication: Product used for unknown indication
     Dosage: 3 DF, Q3D
  383. DOMPERIDONE\PANTOPRAZOLE SODIUM [Concomitant]
     Active Substance: DOMPERIDONE\PANTOPRAZOLE SODIUM
     Dosage: 1 DF, Q8H
     Route: 065

REACTIONS (15)
  - Blepharospasm [Unknown]
  - Drug intolerance [Unknown]
  - Epilepsy [Unknown]
  - Gastrooesophageal reflux disease [Unknown]
  - Hypoaesthesia [Unknown]
  - Memory impairment [Unknown]
  - Migraine [Unknown]
  - Paraesthesia [Unknown]
  - Taste disorder [Unknown]
  - Abdominal pain upper [Unknown]
  - Vomiting [Unknown]
  - Pain [Unknown]
  - Product use in unapproved indication [Unknown]
  - Drug ineffective [Unknown]
  - Off label use [Unknown]
